FAERS Safety Report 8937980 (Version 1)
Quarter: 2012Q4

REPORT INFORMATION
  Report Type: Spontaneous
  Country: US (occurrence: None)
  Receive Date: 20121128
  Receipt Date: 20121128
  Transmission Date: 20130627
  Serious: No
  Sender: FDA-Public Use
  Company Number: None

PATIENT
  Age: 60 Year
  Sex: Male
  Weight: 73.48 kg

DRUGS (1)
  1. DICLOFENAC SODIUM AND MISOPROSTOL [Suspect]

REACTIONS (2)
  - Diarrhoea [None]
  - Product substitution issue [None]
